FAERS Safety Report 20617101 (Version 12)
Quarter: 2023Q1

REPORT INFORMATION
  Report Type: Other
  Country: GB (occurrence: GB)
  Receive Date: 20220321
  Receipt Date: 20230208
  Transmission Date: 20230418
  Serious: Yes (Hospitalization, Other)
  Sender: FDA-Public Use
  Company Number: None

PATIENT
  Age: 69 Year
  Sex: Female
  Weight: 101 kg

DRUGS (55)
  1. OLANZAPINE [Suspect]
     Active Substance: OLANZAPINE
     Indication: Product used for unknown indication
     Dosage: UNK,OVER DOSE
     Route: 065
  2. OLANZAPINE [Suspect]
     Active Substance: OLANZAPINE
     Dosage: UNK,TABLET (UNSPECIFIED)
     Route: 065
  3. OLANZAPINE [Suspect]
     Active Substance: OLANZAPINE
     Dosage: UNK,TABLET
     Route: 065
  4. OLANZAPINE [Suspect]
     Active Substance: OLANZAPINE
     Dosage: UNK,TABLET
     Route: 065
  5. OLANZAPINE [Suspect]
     Active Substance: OLANZAPINE
     Dosage: UNK,TABLET
     Route: 065
  6. OLANZAPINE [Suspect]
     Active Substance: OLANZAPINE
     Dosage: UNK,TABLET (OVER DOSE)
     Route: 065
  7. OLANZAPINE [Suspect]
     Active Substance: OLANZAPINE
     Dosage: UNK,TABLET (UNCOATED, ORAL)
     Route: 048
  8. OLANZAPINE [Suspect]
     Active Substance: OLANZAPINE
     Dosage: UNK,TABLET (UNCOATED, ORAL)
     Route: 048
  9. OLANZAPINE [Suspect]
     Active Substance: OLANZAPINE
     Dosage: UNK,TABLET (UNCOATED, ORAL)
     Route: 048
  10. METFORMIN [Suspect]
     Active Substance: METFORMIN HYDROCHLORIDE
     Indication: Diabetes mellitus
     Dosage: UNK, TABLET OVERDOSE
     Route: 065
  11. METFORMIN [Suspect]
     Active Substance: METFORMIN HYDROCHLORIDE
     Dosage: UNK
     Route: 065
  12. METFORMIN [Suspect]
     Active Substance: METFORMIN HYDROCHLORIDE
     Dosage: UNK, TABLET PREFERRED PRODUCT DESCRIPTION: METFORMIN TABLET
     Route: 065
  13. METFORMIN [Suspect]
     Active Substance: METFORMIN HYDROCHLORIDE
     Dosage: UNK, TABLET(UNSPECIFIED)
     Route: 065
  14. METFORMIN [Suspect]
     Active Substance: METFORMIN HYDROCHLORIDE
     Dosage: UNK, TABLET
     Route: 065
  15. METFORMIN [Suspect]
     Active Substance: METFORMIN HYDROCHLORIDE
     Dosage: UNK
     Route: 065
  16. METFORMIN [Suspect]
     Active Substance: METFORMIN HYDROCHLORIDE
     Dosage: UNK, TABLET (OVERDOSE)(TABLET UNCOATED ORAL)
     Route: 048
  17. METFORMIN [Suspect]
     Active Substance: METFORMIN HYDROCHLORIDE
     Dosage: UNK, TABLET (OVERDOSE)(TABLET UNCOATED ORAL)
     Route: 048
  18. WARFARIN [Suspect]
     Active Substance: WARFARIN
     Indication: Product used for unknown indication
     Dosage: UNK (OVER DOSE) (TABLET)
     Route: 065
  19. WARFARIN [Suspect]
     Active Substance: WARFARIN
     Dosage: UNK, TABLET (UNSPECIFIED)
     Route: 065
  20. WARFARIN [Suspect]
     Active Substance: WARFARIN
     Dosage: UNK,TABLET
     Route: 065
  21. WARFARIN [Suspect]
     Active Substance: WARFARIN
     Dosage: UNK,(TABLET UNCOATED)
     Route: 048
  22. WARFARIN [Suspect]
     Active Substance: WARFARIN
     Dosage: UNK,(TABLET UNCOATED)
     Route: 048
  23. ABILIFY [Suspect]
     Active Substance: ARIPIPRAZOLE
     Indication: Product used for unknown indication
     Dosage: UNK (OVER DOSE)
     Route: 065
  24. ABILIFY [Suspect]
     Active Substance: ARIPIPRAZOLE
     Dosage: UNK,TABLET (OVER DOSE)
     Route: 065
  25. ABILIFY [Suspect]
     Active Substance: ARIPIPRAZOLE
     Dosage: UNK,TABLET(OVER DOSE),UNSPECIFIED
     Route: 065
  26. ABILIFY [Suspect]
     Active Substance: ARIPIPRAZOLE
     Dosage: UNK,(TABLET, UNCOATED OVERDOSE)
     Route: 048
  27. ABILIFY [Suspect]
     Active Substance: ARIPIPRAZOLE
     Dosage: UNK,(TABLET, UNCOATED OVERDOSE)
     Route: 048
  28. ABILIFY [Suspect]
     Active Substance: ARIPIPRAZOLE
     Dosage: UNK,(TABLET, UNCOATED OVERDOSE)
     Route: 048
  29. LITHIUM CARBONATE [Suspect]
     Active Substance: LITHIUM CARBONATE
     Indication: Product used for unknown indication
     Dosage: 600 MILLIGRAM PER DAY, AT NIGHT (DRUG NO LONGER ADMINISTERED)
     Route: 048
     Dates: start: 20160801, end: 20160801
  30. LITHIUM CARBONATE [Suspect]
     Active Substance: LITHIUM CARBONATE
     Dosage: UNK
     Route: 065
  31. LITHIUM CARBONATE [Suspect]
     Active Substance: LITHIUM CARBONATE
     Dosage: 600 MILLIGRAM, QD, AT NIGHT
     Route: 048
     Dates: start: 20160801, end: 20160801
  32. LITHIUM CARBONATE [Suspect]
     Active Substance: LITHIUM CARBONATE
     Dosage: UNK
     Route: 065
  33. LITHIUM CARBONATE [Suspect]
     Active Substance: LITHIUM CARBONATE
     Dosage: 600 MILLIGRAM, HS
     Route: 048
  34. LITHIUM CARBONATE [Suspect]
     Active Substance: LITHIUM CARBONATE
     Dosage: 600 MILLIGRAM PER DAY (600 MG, HS )
     Route: 048
  35. CLOMIPRAMINE [Suspect]
     Active Substance: CLOMIPRAMINE
     Indication: Product used for unknown indication
     Dosage: UNK,OVER DOSE
     Route: 065
  36. CLOMIPRAMINE [Suspect]
     Active Substance: CLOMIPRAMINE
     Dosage: UNK,OVER DOSE
     Route: 065
  37. OMEPRAZOLE [Concomitant]
     Active Substance: OMEPRAZOLE
     Indication: Product used for unknown indication
     Dosage: UNK
     Route: 065
  38. OMEPRAZOLE [Concomitant]
     Active Substance: OMEPRAZOLE
     Dosage: UNK,TABLET
     Route: 065
  39. OMEPRAZOLE [Concomitant]
     Active Substance: OMEPRAZOLE
     Dosage: UNK,TABLET
     Route: 065
  40. OMEPRAZOLE [Concomitant]
     Active Substance: OMEPRAZOLE
     Dosage: UNK,TABLET (UNSPECIFIED)
     Route: 065
  41. OMEPRAZOLE [Concomitant]
     Active Substance: OMEPRAZOLE
     Dosage: UNK,TABLET
     Route: 065
  42. OMEPRAZOLE [Concomitant]
     Active Substance: OMEPRAZOLE
     Dosage: UNK,(TABLET, UNCOATED)
     Route: 048
  43. OMEPRAZOLE [Concomitant]
     Active Substance: OMEPRAZOLE
     Dosage: UNK,(TABLET, UNCOATED)
     Route: 048
  44. ATORVASTATIN [Concomitant]
     Active Substance: ATORVASTATIN
     Indication: Product used for unknown indication
     Dosage: UNK
     Route: 065
  45. ATORVASTATIN [Concomitant]
     Active Substance: ATORVASTATIN
     Dosage: UNK,TABLET (UNSPECIFIED)
     Route: 065
  46. ATORVASTATIN [Concomitant]
     Active Substance: ATORVASTATIN
     Dosage: UNK,TABLET
     Route: 065
  47. ATORVASTATIN [Concomitant]
     Active Substance: ATORVASTATIN
     Dosage: UNK,TABLET
     Route: 065
  48. ATORVASTATIN [Concomitant]
     Active Substance: ATORVASTATIN
     Dosage: UNK,TABLET
     Route: 065
  49. ATORVASTATIN [Concomitant]
     Active Substance: ATORVASTATIN
     Dosage: UNK,TABLET
     Route: 065
  50. ATORVASTATIN [Concomitant]
     Active Substance: ATORVASTATIN
     Dosage: UNK
     Route: 065
  51. ATORVASTATIN [Concomitant]
     Active Substance: ATORVASTATIN
     Dosage: UNK,(TABLET UNCOATED)
     Route: 048
  52. ATORVASTATIN [Concomitant]
     Active Substance: ATORVASTATIN
     Dosage: UNK,(TABLET UNCOATED)
     Route: 048
  53. LANTUS [Concomitant]
     Active Substance: INSULIN GLARGINE
     Indication: Product used for unknown indication
     Dosage: UNK
     Route: 065
  54. LANTUS [Concomitant]
     Active Substance: INSULIN GLARGINE
     Dosage: UNK
     Route: 065
  55. NOVORAPID [Concomitant]
     Active Substance: INSULIN ASPART
     Indication: Product used for unknown indication
     Dosage: UNK
     Route: 065

REACTIONS (7)
  - Dialysis [Unknown]
  - International normalised ratio abnormal [Unknown]
  - Acute kidney injury [Recovered/Resolved]
  - Polyuria [Unknown]
  - Hypotension [Unknown]
  - Overdose [Unknown]
  - Medication error [Unknown]

NARRATIVE: CASE EVENT DATE: 20160803
